FAERS Safety Report 12699819 (Version 1)
Quarter: 2016Q3

REPORT INFORMATION
  Report Type: Spontaneous
  Country: CA (occurrence: CA)
  Receive Date: 20160830
  Receipt Date: 20160830
  Transmission Date: 20161109
  Serious: Yes (Other)
  Sender: FDA-Public Use
  Company Number: CA-CONCORDIA PHARMACEUTICALS INC.-CO-PL-CA-2016-450

PATIENT
  Sex: Female

DRUGS (6)
  1. ENBREL [Concomitant]
     Active Substance: ETANERCEPT
  2. TAMSULOSIN [Concomitant]
     Active Substance: TAMSULOSIN
  3. METHOTREXATE. [Concomitant]
     Active Substance: METHOTREXATE
     Dates: start: 201601
  4. CELEBREX [Concomitant]
     Active Substance: CELECOXIB
  5. HYDROMORPH [Concomitant]
     Active Substance: HYDROMORPHONE
  6. HYDROXYCHLOROQUINE SULFATE. [Suspect]
     Active Substance: HYDROXYCHLOROQUINE SULFATE
     Indication: PRODUCT USED FOR UNKNOWN INDICATION

REACTIONS (1)
  - Nephrolithiasis [Unknown]
